FAERS Safety Report 5141397-7 (Version None)
Quarter: 2006Q4

REPORT INFORMATION
  Report Type: 
  Country: None (occurrence: None)
  Receive Date: 20061101
  Receipt Date: 20061024
  Transmission Date: 20070319
  Serious: Yes (Hospitalization, Disabling)
  Sender: FDA-Public Use
  Company Number: JP-JPN-A200604507

PATIENT
  Sex: Male

DRUGS (13)
  1. ZIAGEN [Suspect]
     Indication: ACQUIRED IMMUNODEFICIENCY SYNDROME
     Dosage: 300MG TWICE PER DAY
     Route: 048
     Dates: start: 20051207, end: 20051211
  2. KALETRA [Suspect]
     Indication: ACQUIRED IMMUNODEFICIENCY SYNDROME
     Dosage: 6CAP PER DAY
     Route: 048
     Dates: start: 20051207, end: 20051211
  3. EPIVIR [Concomitant]
     Indication: ACQUIRED IMMUNODEFICIENCY SYNDROME
     Dosage: 300MG PER DAY
     Route: 048
     Dates: start: 19970806, end: 20051211
  4. ZERIT [Concomitant]
     Indication: ACQUIRED IMMUNODEFICIENCY SYNDROME
     Dosage: 60MG PER DAY
     Route: 048
     Dates: start: 19970806, end: 20051206
  5. RITONAVIR [Concomitant]
     Indication: ACQUIRED IMMUNODEFICIENCY SYNDROME
     Dosage: 100MG PER DAY
     Route: 048
     Dates: start: 20051219
  6. STOCRIN [Concomitant]
     Indication: ACQUIRED IMMUNODEFICIENCY SYNDROME
     Dosage: 600MG PER DAY
     Route: 048
     Dates: start: 20051219
  7. REYATAZ [Concomitant]
     Indication: ACQUIRED IMMUNODEFICIENCY SYNDROME
     Dosage: 300MG PER DAY
     Route: 048
     Dates: start: 20051219
  8. KLARICID [Concomitant]
     Indication: ANTIBIOTIC PROPHYLAXIS
     Dosage: 4TAB PER DAY
     Route: 048
     Dates: start: 20050401, end: 20051206
  9. UNKNOWN DRUG [Concomitant]
     Indication: ANTIBIOTIC PROPHYLAXIS
     Route: 065
     Dates: start: 20050401
  10. LASIX [Concomitant]
     Dosage: .5UNIT PER DAY
     Route: 065
     Dates: start: 20051219, end: 20060228
  11. AZITHROMYCIN [Concomitant]
     Indication: ANTIBIOTIC PROPHYLAXIS
     Dosage: 1TAB PER DAY
     Route: 048
     Dates: start: 20051207
  12. PREDONINE [Concomitant]
     Indication: RENAL FAILURE
     Dosage: 5MG PER DAY
     Route: 065
     Dates: start: 20060126
  13. KALIMATE [Concomitant]
     Dosage: 5MG THREE TIMES PER DAY
     Route: 048
     Dates: start: 20060206, end: 20060315

REACTIONS (5)
  - CONDUCTION DISORDER [None]
  - DYSPNOEA [None]
  - ELECTROCARDIOGRAM QRS COMPLEX PROLONGED [None]
  - LIP AND/OR ORAL CAVITY CANCER [None]
  - MALAISE [None]
